FAERS Safety Report 9320215 (Version 1)
Quarter: 2013Q2

REPORT INFORMATION
  Report Type: Spontaneous
  Country: CA (occurrence: CA)
  Receive Date: 20130530
  Receipt Date: 20130530
  Transmission Date: 20140414
  Serious: Yes (Hospitalization, Other)
  Sender: FDA-Public Use
  Company Number: CA-ELI_LILLY_AND_COMPANY-CA201303000841

PATIENT
  Age: 55 Year
  Sex: Female

DRUGS (8)
  1. FORTEO [Suspect]
     Indication: OSTEOPOROSIS
     Dosage: 20 UG, QD
     Route: 058
     Dates: start: 20121220
  2. HUMIRA [Concomitant]
  3. PURINETHOL [Concomitant]
  4. RAMIPRIL [Concomitant]
  5. PREDNISONE [Concomitant]
  6. CALCIUM [Concomitant]
  7. VITAMIN D NOS [Concomitant]
  8. DILAUDID [Concomitant]

REACTIONS (4)
  - Hip fracture [Not Recovered/Not Resolved]
  - Back pain [Not Recovered/Not Resolved]
  - Gait disturbance [Not Recovered/Not Resolved]
  - Arthralgia [Not Recovered/Not Resolved]
